FAERS Safety Report 6203473-7 (Version None)
Quarter: 2009Q2

REPORT INFORMATION
  Report Type: 
  Country: None (occurrence: None)
  Receive Date: 20090521
  Receipt Date: 20090507
  Transmission Date: 20091009
  Serious: Yes (Hospitalization, Other)
  Sender: FDA-Public Use
  Company Number: A-US2009-25243

PATIENT
  Age: 63 Year
  Sex: Female

DRUGS (7)
  1. TRACLEER [Suspect]
     Indication: PULMONARY ARTERIAL HYPERTENSION
     Dosage: 125 MG, BID, ORAL, 62.5 MG, BID, ORAL
     Route: 048
     Dates: end: 20090415
  2. TRACLEER [Suspect]
     Indication: PULMONARY ARTERIAL HYPERTENSION
     Dosage: 125 MG, BID, ORAL, 62.5 MG, BID, ORAL
     Route: 048
     Dates: start: 19990101
  3. ASPIRIN [Concomitant]
  4. LISINOPRIL [Concomitant]
  5. FLUCONAZOLE [Concomitant]
  6. LEVOTHYROXINE SODIUM [Concomitant]
  7. ATENOLOL [Concomitant]

REACTIONS (5)
  - BIOPSY LIVER ABNORMAL [None]
  - GALLBLADDER DISORDER [None]
  - HEPATIC FIBROSIS [None]
  - HEPATIC NECROSIS [None]
  - INFLAMMATION [None]
